FAERS Safety Report 9749057 (Version 2)
Quarter: 2014Q1

REPORT INFORMATION
  Report Type: Spontaneous
  Country: US (occurrence: US)
  Receive Date: 20131212
  Receipt Date: 20140312
  Transmission Date: 20141002
  Serious: No
  Sender: FDA-Public Use
  Company Number: US-INCYTE CORPORATION-2013IN002299

PATIENT
  Sex: Female

DRUGS (9)
  1. JAKAFI [Suspect]
     Indication: ESSENTIAL THROMBOCYTHAEMIA
     Dosage: 10 MG, BID
     Route: 048
     Dates: start: 201304, end: 201306
  2. JAKAFI [Suspect]
     Dosage: 10 MG, QD
     Route: 048
     Dates: start: 201306
  3. ATENOLOL [Concomitant]
     Dosage: 50 MG, UNK
  4. LEVOTHYROXINE [Concomitant]
     Dosage: 100 MCG, UNK
  5. ASPIRIN [Concomitant]
     Dosage: 81 MG, UNK
  6. CALCIUM [Concomitant]
     Dosage: 600 MG, UNK
  7. VITAMIN D3 [Concomitant]
     Dosage: 1000 UT, UNK
  8. VITAMIN E [Concomitant]
     Dosage: 400 UT, UNK
  9. ALLEGRA [Concomitant]
     Dosage: 60 MG, UNK

REACTIONS (5)
  - Abdominal distension [Unknown]
  - Drug dose omission [Unknown]
  - Rash [Recovering/Resolving]
  - Nausea [Unknown]
  - Weight increased [Unknown]
